FAERS Safety Report 21265071 (Version 1)
Quarter: 2022Q3

REPORT INFORMATION
  Report Type: Report from Study
  Country: IT (occurrence: IT)
  Receive Date: 20220829
  Receipt Date: 20220829
  Transmission Date: 20221027
  Serious: Yes (Hospitalization)
  Sender: FDA-Public Use
  Company Number: None

PATIENT
  Age: 14 Year
  Sex: Male
  Weight: 49 kg

DRUGS (3)
  1. VINCRISTINE [Suspect]
     Active Substance: VINCRISTINE
     Indication: Ewing^s sarcoma metastatic
     Dosage: 2 MILLIGRAM DAILY;
     Dates: start: 20220324, end: 20220324
  2. DOXORUBICIN [Suspect]
     Active Substance: DOXORUBICIN
     Indication: Ewing^s sarcoma metastatic
     Dosage: 73 MILLIGRAM DAILY; 73 MG / DAY ON 03/24 AND 03/25/2022, DURATION: 1 DAY
     Dates: start: 20220324, end: 20220325
  3. IFOSFAMIDE [Suspect]
     Active Substance: IFOSFAMIDE
     Indication: Ewing^s sarcoma metastatic
     Dosage: 4850 MILLIGRAM DAILY; 4850 MG / DAY ON 03/24 AND 03/25/2022, DURATION: 1 DAY
     Dates: start: 20220324, end: 20220325

REACTIONS (1)
  - Febrile neutropenia [Recovered/Resolved]

NARRATIVE: CASE EVENT DATE: 20220406
